FAERS Safety Report 13429885 (Version 1)
Quarter: 2017Q2

REPORT INFORMATION
  Report Type: Spontaneous
  Country: US (occurrence: US)
  Receive Date: 20170412
  Receipt Date: 20170412
  Transmission Date: 20170830
  Serious: No
  Sender: FDA-Public Use
  Company Number: US-CELGENEUS-USA-20170310741

PATIENT
  Sex: Female

DRUGS (2)
  1. OTEZLA [Suspect]
     Active Substance: APREMILAST
     Indication: PRODUCT USED FOR UNKNOWN INDICATION
     Dosage: 60 MILLIGRAM
     Route: 048
     Dates: start: 20170102
  2. OTEZLA [Suspect]
     Active Substance: APREMILAST
     Dosage: USE AS DIRECTED BY PHYSICIAN
     Route: 048
     Dates: start: 20170131

REACTIONS (1)
  - Drug ineffective [Unknown]
